FAERS Safety Report 12062022 (Version 1)
Quarter: 2016Q1

REPORT INFORMATION
  Report Type: Report from Study
  Country: US (occurrence: US)
  Receive Date: 20160210
  Receipt Date: 20160210
  Transmission Date: 20160526
  Serious: Yes (Hospitalization)
  Sender: FDA-Public Use
  Company Number: US-GILEAD-2016-0196944

PATIENT
  Age: 18 Year
  Sex: Male

DRUGS (4)
  1. AZTREONAM LYSINE [Suspect]
     Active Substance: AZTREONAM LYSINE
     Indication: PSEUDOMONAS INFECTION
  2. IVACAFTOR [Concomitant]
     Active Substance: IVACAFTOR
     Dosage: UNK UNK, QD
  3. AZTREONAM LYSINE [Suspect]
     Active Substance: AZTREONAM LYSINE
     Indication: CYSTIC FIBROSIS
     Dosage: 75 MG, UNK
     Route: 055
     Dates: start: 20150424
  4. LUMACAFTOR [Concomitant]
     Active Substance: LUMACAFTOR
     Dosage: UNK MG, UNK
     Dates: start: 20150818

REACTIONS (3)
  - Gastrooesophageal reflux disease [Unknown]
  - Haematochezia [Unknown]
  - Pain [Unknown]
